FAERS Safety Report 19126717 (Version 2)
Quarter: 2021Q2

REPORT INFORMATION
  Report Type: Spontaneous
  Country: FR (occurrence: FR)
  Receive Date: 20210413
  Receipt Date: 20210614
  Transmission Date: 20210717
  Serious: Yes (Life-Threatening, Hospitalization, Other)
  Sender: FDA-Public Use
  Company Number: FR-ASTRAZENECA-2021A299481

PATIENT
  Age: 21393 Day
  Sex: Male

DRUGS (3)
  1. TAGRISSO [Suspect]
     Active Substance: OSIMERTINIB
     Indication: LUNG ADENOCARCINOMA
     Route: 048
     Dates: start: 202101, end: 202104
  2. TAGRISSO [Suspect]
     Active Substance: OSIMERTINIB
     Indication: LUNG CANCER METASTATIC
     Route: 048
     Dates: start: 202101, end: 202104
  3. VAXZEVRIA [Suspect]
     Active Substance: AZD-1222
     Indication: COVID-19 IMMUNISATION
     Dosage: UNK ONCE/SINGLE ADMINISTRATION
     Route: 030
     Dates: start: 20210328

REACTIONS (3)
  - Thrombosis [Recovering/Resolving]
  - Myocardial infarction [Recovered/Resolved with Sequelae]
  - Arteriosclerosis [Unknown]

NARRATIVE: CASE EVENT DATE: 20210406
